FAERS Safety Report 9025358 (Version 2)
Quarter: 2013Q1

REPORT INFORMATION
  Report Type: Spontaneous
  Country: US (occurrence: US)
  Receive Date: 20121211
  Receipt Date: 20130220
  Transmission Date: 20140127
  Serious: Yes (Other)
  Sender: FDA-Public Use
  Company Number: PHEH2012US024140

PATIENT
  Sex: Male

DRUGS (9)
  1. TASIGNA [Suspect]
     Indication: CHRONIC MYELOID LEUKAEMIA
     Dosage: 200 MG, BID
     Dates: start: 201104
  2. SYNTHROID [Concomitant]
     Dosage: 0.125 MG, QD
  3. OMEPRAZOLE [Concomitant]
     Dosage: 20 MG, QD
  4. TRAMADOL [Concomitant]
  5. PRAVASTATIN [Concomitant]
     Dosage: 20 MG, QD
  6. DILTIAZEM [Concomitant]
     Dosage: 180 MG, EVERY MORNING
  7. TESTOSTERONE [Concomitant]
  8. FLUNISOLIDE [Concomitant]
     Route: 045
  9. EYE DROPS [Concomitant]

REACTIONS (1)
  - Cerebrovascular accident [Recovered/Resolved with Sequelae]
